FAERS Safety Report 5171169-9 (Version None)
Quarter: 2006Q4

REPORT INFORMATION
  Report Type: 
  Country: None (occurrence: None)
  Receive Date: 20061208
  Receipt Date: 20061208
  Transmission Date: 20070319
  Serious: Yes (Other)
  Sender: FDA-Public Use
  Company Number: None

PATIENT
  Age: 60 Year
  Sex: Female
  Weight: 95.3 kg

DRUGS (1)
  1. EZETIMIBE [Suspect]
     Dosage: 10 MG, QDAY, PO
     Route: 048
     Dates: start: 20060822, end: 20060825

REACTIONS (2)
  - MYALGIA [None]
  - PARALYSIS [None]
